FAERS Safety Report 23866446 (Version 1)
Quarter: 2024Q2

REPORT INFORMATION
  Report Type: Spontaneous
  Country: US (occurrence: US)
  Receive Date: 20240517
  Receipt Date: 20240517
  Transmission Date: 20240716
  Serious: No
  Sender: FDA-Public Use
  Company Number: US-TEVA-VS-3193893

PATIENT

DRUGS (1)
  1. VILAZODONE [Suspect]
     Active Substance: VILAZODONE
     Indication: Product used for unknown indication
     Route: 065

REACTIONS (2)
  - Weight increased [Unknown]
  - Product substitution issue [Unknown]
